FAERS Safety Report 15044089 (Version 1)
Quarter: 2018Q2

REPORT INFORMATION
  Report Type: Spontaneous
  Country: US (occurrence: US)
  Receive Date: 20180621
  Receipt Date: 20180621
  Transmission Date: 20180711
  Serious: Yes (Hospitalization)
  Sender: FDA-Public Use
  Company Number: US-TEVA-2018-US-910386

PATIENT
  Age: 21 Month
  Sex: Female
  Weight: 12 kg

DRUGS (4)
  1. ALGLUCOSIDASE-ALFA [Concomitant]
     Indication: GLYCOGEN STORAGE DISEASE TYPE II
  2. METHOTREXATE. [Suspect]
     Active Substance: METHOTREXATE
     Indication: GLYCOGEN STORAGE DISEASE TYPE II
     Route: 065
  3. PIPERACILLIN/TAZOBACTAM [Suspect]
     Active Substance: PIPERACILLIN SODIUM\TAZOBACTAM SODIUM
     Indication: PNEUMONIA ASPIRATION
     Route: 065
  4. RITUXIMAB. [Suspect]
     Active Substance: RITUXIMAB
     Indication: GLYCOGEN STORAGE DISEASE TYPE II
     Route: 065

REACTIONS (1)
  - Clostridium difficile infection [Recovered/Resolved]
